FAERS Safety Report 4644899-2 (Version None)
Quarter: 2005Q2

REPORT INFORMATION
  Report Type: 
  Country: None (occurrence: None)
  Receive Date: 20050422
  Receipt Date: 20050308
  Transmission Date: 20051028
  Serious: Yes (Hospitalization, Disabling, Other)
  Sender: FDA-Public Use
  Company Number: 10531

PATIENT
  Age: 49 Year
  Sex: Male

DRUGS (1)
  1. MORPHINE [Suspect]
     Indication: BACK PAIN
     Dosage: 3.2 MG DAILY
     Dates: start: 20020801

REACTIONS (15)
  - ASTHENIA [None]
  - BURNING SENSATION [None]
  - CONSTIPATION [None]
  - CSF IMMUNOGLOBULIN INCREASED [None]
  - CSF PROTEIN INCREASED [None]
  - CSF WHITE BLOOD CELL COUNT INCREASED [None]
  - DRUG EFFECT DECREASED [None]
  - MEDICAL DEVICE COMPLICATION [None]
  - MYELOPATHY [None]
  - NEPHROLITHIASIS [None]
  - PARALYSIS FLACCID [None]
  - PARAPLEGIA [None]
  - SENSORY LOSS [None]
  - SOMNOLENCE [None]
  - SPINAL OSTEOARTHRITIS [None]
